FAERS Safety Report 25448503 (Version 1)
Quarter: 2025Q2

REPORT INFORMATION
  Report Type: Spontaneous
  Country: US (occurrence: US)
  Receive Date: 20250618
  Receipt Date: 20250618
  Transmission Date: 20250717
  Serious: Yes (Other)
  Sender: AMGEN
  Company Number: US-AMGEN-USASP2025115159

PATIENT
  Age: 95 Year
  Sex: Female

DRUGS (2)
  1. PROLIA [Suspect]
     Active Substance: DENOSUMAB
     Indication: Product used for unknown indication
     Route: 065
     Dates: end: 2024
  2. PROLIA [Suspect]
     Active Substance: DENOSUMAB
     Route: 065
     Dates: start: 202411

REACTIONS (4)
  - Spinal fusion surgery [Unknown]
  - Arthralgia [Unknown]
  - Back pain [Unknown]
  - Arthritis [Unknown]
